FAERS Safety Report 8245894-7 (Version None)
Quarter: 2012Q1

REPORT INFORMATION
  Report Type: 
  Country: None (occurrence: None)
  Receive Date: 20120328
  Receipt Date: 20120328
  Transmission Date: 20120608
  Serious: Yes (Hospitalization)
  Sender: FDA-Public Use
  Company Number: None

PATIENT
  Age: 80 Year
  Sex: Male
  Weight: 101.8 kg

DRUGS (1)
  1. TERAZOSIN HCL [Suspect]
     Dosage: 5 MG EVERY DAY PO
     Route: 048
     Dates: end: 20110711

REACTIONS (4)
  - DIZZINESS [None]
  - HYPOTENSION [None]
  - HEADACHE [None]
  - SYNCOPE [None]
